FAERS Safety Report 8992708 (Version 3)
Quarter: 2013Q1

REPORT INFORMATION
  Report Type: Report from Study
  Country: CA (occurrence: CA)
  Receive Date: 20130101
  Receipt Date: 20130222
  Transmission Date: 20140127
  Serious: Yes (Other)
  Sender: FDA-Public Use
  Company Number: CA-ROCHE-1175117

PATIENT
  Age: 55 None
  Sex: Male
  Weight: 98 kg

DRUGS (8)
  1. ACTEMRA [Suspect]
     Indication: RHEUMATOID ARTHRITIS
     Route: 042
     Dates: start: 20101007
  2. ACTEMRA [Suspect]
     Route: 042
     Dates: start: 20121022
  3. ACTEMRA [Suspect]
     Route: 042
     Dates: start: 20121119
  4. ACTEMRA [Suspect]
     Route: 042
     Dates: start: 20121217
  5. TRIDURAL [Concomitant]
  6. CLONAZEPAM [Concomitant]
  7. DESYREL [Concomitant]
  8. TYLENOL [Concomitant]
     Route: 065

REACTIONS (2)
  - Mass [Not Recovered/Not Resolved]
  - Infusion related reaction [Unknown]
